FAERS Safety Report 21864439 (Version 1)
Quarter: 2023Q1

REPORT INFORMATION
  Report Type: Spontaneous
  Country: NL (occurrence: NL)
  Receive Date: 20230116
  Receipt Date: 20230116
  Transmission Date: 20230418
  Serious: Yes (Other)
  Sender: FDA-Public Use
  Company Number: None

PATIENT
  Sex: Female
  Weight: 60 kg

DRUGS (2)
  1. LACOSAMIDE [Suspect]
     Active Substance: LACOSAMIDE
     Indication: Epilepsy
     Dosage: 1 TABLET TWICE DAILY IN COMBINATION WITH LACOSAMIDE 50MG (200MG TWICE DAILY)
     Dates: start: 20221209, end: 20221227
  2. LACOSAMIDE [Suspect]
     Active Substance: LACOSAMIDE
     Dosage: 1 TABLET TWICE DAILY IN COMBINATION WITH LACOSAMIDE 50MG (200MG TWICE DAILY)
     Dates: start: 20221209, end: 20221227

REACTIONS (2)
  - Epilepsy [Unknown]
  - Product substitution issue [Unknown]
